FAERS Safety Report 7604426-4 (Version None)
Quarter: 2011Q3

REPORT INFORMATION
  Report Type: 
  Country: None (occurrence: None)
  Receive Date: 20110712
  Receipt Date: 20110708
  Transmission Date: 20111222
  Serious: Yes (Death, Other)
  Sender: FDA-Public Use
  Company Number: US-ASTRAZENECA-2011SE40879

PATIENT
  Age: 54 Year
  Sex: Male

DRUGS (2)
  1. SEROQUEL [Suspect]
     Route: 048
     Dates: end: 20110101
  2. SEROQUEL [Suspect]
     Route: 048
     Dates: start: 20110628

REACTIONS (3)
  - CARDIAC ARREST [None]
  - ALCOHOL DETOXIFICATION [None]
  - DRUG DOSE OMISSION [None]
